FAERS Safety Report 13004583 (Version 2)
Quarter: 2017Q2

REPORT INFORMATION
  Report Type: Spontaneous
  Country: FR (occurrence: FR)
  Receive Date: 20161207
  Receipt Date: 20170428
  Transmission Date: 20170830
  Serious: Yes (Life-Threatening, Hospitalization)
  Sender: FDA-Public Use
  Company Number: FR-ASTRAZENECA-2016SF28347

PATIENT
  Age: 799 Month
  Sex: Male
  Weight: 145 kg

DRUGS (14)
  1. COSOPT [Concomitant]
     Active Substance: DORZOLAMIDE HYDROCHLORIDE\TIMOLOL MALEATE
     Dosage: ONE DROP A DAY IN THE RIGHT EYE
     Route: 047
  2. STELARA [Suspect]
     Active Substance: USTEKINUMAB
     Indication: PSORIASIS
     Dosage: 1 DF ONCE EVERY 12 WEEKS
     Route: 058
     Dates: start: 20160216
  3. COUMADINE [Concomitant]
     Active Substance: WARFARIN SODIUM
     Route: 048
  4. AMLOR [Concomitant]
     Active Substance: AMLODIPINE BESYLATE
     Route: 048
  5. HYTACAND [Suspect]
     Active Substance: CANDESARTAN CILEXETIL\HYDROCHLOROTHIAZIDE
     Route: 048
  6. MOPRAL [Concomitant]
     Active Substance: OMEPRAZOLE SODIUM
     Route: 048
  7. DUOTRAV [Concomitant]
     Active Substance: TIMOLOL MALEATE\TRAVOPROST
     Dosage: ONE DROP A DAY IN THE RIGHT EYE
     Route: 047
  8. DAIVOBET [Concomitant]
     Active Substance: BETAMETHASONE DIPROPIONATE\CALCIPOTRIENE
     Dosage: 1 APPLICATION A DAY
  9. ETANERCEPT [Suspect]
     Active Substance: ETANERCEPT
     Indication: PSORIASIS
     Route: 058
     Dates: start: 201305, end: 20160216
  10. LASILIX [Suspect]
     Active Substance: FUROSEMIDE
     Dosage: 250MG/25ML 1DF A DAY
     Route: 048
  11. METFORMIN [Concomitant]
     Active Substance: METFORMIN HYDROCHLORIDE
     Route: 048
  12. AERIUS [Concomitant]
     Active Substance: DESLORATADINE
     Route: 048
  13. PARACETAMOL [Concomitant]
     Active Substance: ACETAMINOPHEN
     Route: 048
  14. INSULIN [Concomitant]
     Active Substance: INSULIN NOS
     Dosage: INSULIN PUMP ONE A DAY
     Route: 058

REACTIONS (3)
  - Gastrointestinal angiodysplasia [Not Recovered/Not Resolved]
  - Blood creatinine increased [Recovered/Resolved]
  - Iron deficiency anaemia [Recovering/Resolving]

NARRATIVE: CASE EVENT DATE: 20160325
